FAERS Safety Report 8508135-9 (Version None)
Quarter: 2012Q2

REPORT INFORMATION
  Report Type: 
  Country: None (occurrence: None)
  Receive Date: 20120405
  Receipt Date: 20090922
  Transmission Date: 20120825
  Serious: Yes (Other)
  Sender: FDA-Public Use
  Company Number: PHEH2009US09427

PATIENT
  Age: 48 Year
  Sex: Female
  Weight: 62.6 kg

DRUGS (6)
  1. TOPROL-XL [Concomitant]
  2. RECLAST [Suspect]
     Indication: OSTEOPENIA
     Dosage: INFUSION
     Dates: start: 20090201
  3. RECLAST [Suspect]
     Indication: OSTEOPOROSIS
     Dosage: INFUSION
     Dates: start: 20090201
  4. CALCIUM WITH VITAMIN D (CALCIUM PHOSPHATE, CALCIUM SODIUM LACTATE, ERG [Concomitant]
  5. METFFORMIN HYDROCHLORIDE [Concomitant]
  6. CLIMARA [Concomitant]

REACTIONS (1)
  - OSTEOPOROTIC FRACTURE [None]
